FAERS Safety Report 20991341 (Version 1)
Quarter: 2022Q2

REPORT INFORMATION
  Report Type: Report from Study
  Country: US (occurrence: None)
  Receive Date: 20220622
  Receipt Date: 20220622
  Transmission Date: 20220721
  Serious: Yes (Life-Threatening, Hospitalization)
  Sender: FDA-Public Use
  Company Number: US-ROCHE-3120896

PATIENT
  Age: 77 Year
  Sex: Male
  Weight: 94 kg

DRUGS (7)
  1. FARICIMAB [Suspect]
     Active Substance: FARICIMAB
     Indication: Macular oedema
     Route: 050
     Dates: start: 20211229
  2. FARICIMAB [Suspect]
     Active Substance: FARICIMAB
     Indication: Macular oedema
     Route: 050
     Dates: start: 20211229
  3. FARICIMAB [Suspect]
     Active Substance: FARICIMAB
     Indication: Retinal vein occlusion
  4. WARFARIN [Concomitant]
     Active Substance: WARFARIN
     Indication: Atrial fibrillation
     Route: 048
     Dates: start: 2008
  5. ALBUTEROL [Concomitant]
     Active Substance: ALBUTEROL
     Indication: Chronic obstructive pulmonary disease
     Route: 055
     Dates: start: 2006
  6. METOPROLOL [Concomitant]
     Active Substance: METOPROLOL
     Indication: Hypertension
     Route: 048
     Dates: start: 2006
  7. LISINOPRIL [Concomitant]
     Active Substance: LISINOPRIL
     Indication: Hypertension
     Route: 048
     Dates: start: 202111

REACTIONS (1)
  - Subdural haematoma [Unknown]

NARRATIVE: CASE EVENT DATE: 20220613
